FAERS Safety Report 7841895-9 (Version None)
Quarter: 2011Q4

REPORT INFORMATION
  Report Type: 
  Country: None (occurrence: None)
  Receive Date: 20111025
  Receipt Date: 20111020
  Transmission Date: 20120403
  Serious: Yes (Life-Threatening, Other)
  Sender: FDA-Public Use
  Company Number: PHHY2011JP80354

PATIENT
  Sex: Male
  Weight: 50 kg

DRUGS (22)
  1. NORVASC [Concomitant]
     Indication: HYPERTENSION
     Dosage: 5 MG, UNK
     Route: 048
     Dates: start: 20090131
  2. NORVASC [Concomitant]
     Dosage: 10 MG, UNK
     Route: 048
  3. PANCREAZE [Concomitant]
     Dosage: 3 DF, UNK
     Route: 048
     Dates: start: 20090131
  4. VALSARTAN [Suspect]
     Indication: HYPERTENSION
     Dosage: 80 MG, QD
     Route: 048
     Dates: start: 20090321, end: 20100826
  5. TRICHLORMETHIAZIDE [Concomitant]
     Indication: HYPERTENSION
     Dosage: 1 MG, UNK
     Dates: start: 20090131
  6. TICLOPIDINE HCL [Concomitant]
     Dosage: 200 MG, UNK
     Route: 048
     Dates: start: 20090131
  7. OPALMON [Concomitant]
     Dosage: 15 UG, UNK
     Route: 048
     Dates: start: 20090131
  8. TENORMIN [Concomitant]
     Indication: HYPERTENSION
     Dosage: 25 MG, UNK
     Route: 048
     Dates: start: 20090919, end: 20110728
  9. DOXAZOSIN MESYLATE [Concomitant]
     Indication: HYPERTENSION
     Dosage: 4 MG, UNK
     Route: 048
     Dates: start: 20090131
  10. DIART [Concomitant]
     Dosage: 30 MG, UNK
     Route: 048
     Dates: start: 20100312, end: 20100826
  11. CEROCRAL [Concomitant]
     Dosage: 60 MG, UNK
     Route: 048
     Dates: start: 20090131
  12. EPOGIN [Concomitant]
     Dosage: 6000 IU, UNK
     Route: 030
     Dates: start: 20100304, end: 20100826
  13. SLOW-K [Concomitant]
     Dosage: 1800 MG, UNK
     Route: 048
     Dates: start: 20100820, end: 20100826
  14. ADALAT [Concomitant]
     Indication: HYPERTENSION
     Dosage: 20 MG, UNK
     Route: 048
     Dates: start: 20100729, end: 20100826
  15. LASIX [Concomitant]
     Dosage: 40 MG, UNK
     Route: 048
     Dates: start: 20100401, end: 20100826
  16. TORSEMIDE [Concomitant]
     Dosage: 4 MG, UNK
     Route: 048
     Dates: start: 20100604, end: 20100826
  17. ATELEC [Concomitant]
     Indication: HYPERTENSION
     Dosage: 10 MG, UNK
     Route: 048
     Dates: start: 20100604
  18. METOPROLOL TARTRATE [Concomitant]
     Indication: HYPERTENSION
     Dosage: 20 MG, UNK
     Route: 048
     Dates: start: 20100729, end: 20100826
  19. RABEPRAZOLE SODIUM [Concomitant]
     Dosage: 10 MG, UNK
     Route: 048
     Dates: start: 20090131
  20. OLMESARTAN MEDOXOMIL [Concomitant]
     Indication: HYPERTENSION
     Dosage: 20 MG, UNK
     Route: 048
     Dates: start: 20090131, end: 20090320
  21. MUCOSOLVAN [Concomitant]
     Dosage: 45 MG, UNK
     Route: 048
     Dates: start: 20090131
  22. MUCOSTA [Concomitant]
     Dosage: 300 MG, UNK
     Route: 048
     Dates: start: 20090131

REACTIONS (6)
  - CHRONIC RESPIRATORY FAILURE [None]
  - CONCOMITANT DISEASE AGGRAVATED [None]
  - CARDIAC FAILURE [None]
  - BLOOD PRESSURE DIASTOLIC DECREASED [None]
  - BLOOD CREATININE INCREASED [None]
  - RENAL FAILURE [None]
